FAERS Safety Report 6892241-9 (Version None)
Quarter: 2010Q3

REPORT INFORMATION
  Report Type: 
  Country: None (occurrence: None)
  Receive Date: 20100731
  Receipt Date: 20080313
  Transmission Date: 20110219
  Serious: No
  Sender: FDA-Public Use
  Company Number: US-PFIZER INC-2008020884

PATIENT
  Sex: Female
  Weight: 52.3 kg

DRUGS (6)
  1. NORVASC [Suspect]
     Indication: HYPERTENSION
     Dates: start: 20080201
  2. ALPHAGAN [Concomitant]
     Route: 047
  3. XALATAN [Concomitant]
     Route: 047
  4. CARBACHOL [Concomitant]
     Route: 047
  5. HYZAAR [Concomitant]
  6. TOPROL-XL [Concomitant]
     Route: 047

REACTIONS (1)
  - BLOOD PRESSURE INADEQUATELY CONTROLLED [None]
